FAERS Safety Report 8393106-6 (Version None)
Quarter: 2012Q1

REPORT INFORMATION
  Report Type: 
  Country: None (occurrence: None)
  Receive Date: 20120323
  Receipt Date: 20110404
  Transmission Date: 20120608
  Serious: Yes (Other)
  Sender: FDA-Public Use
  Company Number: 163-21880-11031553

PATIENT
  Age: 80 Year
  Sex: Female

DRUGS (5)
  1. ACYCLOVIR [Concomitant]
  2. DEXAMETHASONE [Concomitant]
  3. ALLOPURINOL [Concomitant]
  4. REVLIMID [Suspect]
     Indication: MULTIPLE MYELOMA
     Dosage: 5 MG, /21, PO
     Route: 048
     Dates: start: 20100211
  5. CLONIDINE HCL (CLONIDINE HYDROCHLORIDE) [Concomitant]

REACTIONS (1)
  - DISEASE PROGRESSION [None]
